FAERS Safety Report 4566034-1 (Version None)
Quarter: 2005Q1

REPORT INFORMATION
  Report Type: 
  Country: None (occurrence: None)
  Receive Date: 20050131
  Receipt Date: 20041227
  Transmission Date: 20050727
  Serious: Yes (Disabling)
  Sender: FDA-Public Use
  Company Number: US-MERCK-0412USA02916

PATIENT
  Age: 47 Year
  Sex: Male
  Weight: 86 kg

DRUGS (8)
  1. VIOXX [Suspect]
     Indication: TENDONITIS
     Route: 048
     Dates: start: 20010201, end: 20010101
  2. VIOXX [Suspect]
     Route: 048
     Dates: start: 20010101, end: 20010801
  3. VIOXX [Suspect]
     Indication: ARTHRALGIA
     Route: 048
     Dates: start: 20010201, end: 20010101
  4. VIOXX [Suspect]
     Route: 048
     Dates: start: 20010101, end: 20010801
  5. CARDURA [Concomitant]
     Route: 065
  6. ELAVIL [Concomitant]
     Route: 048
  7. PRILOSEC [Concomitant]
     Route: 065
  8. ZANTAC [Concomitant]
     Route: 065

REACTIONS (28)
  - ABDOMINAL PAIN [None]
  - APNOEA [None]
  - ARTHRALGIA [None]
  - ASTHENIA [None]
  - BLEPHARITIS [None]
  - BREATHING-RELATED SLEEP DISORDER [None]
  - CEREBRAL ARTERY OCCLUSION [None]
  - CEREBRAL HAEMORRHAGE [None]
  - CEREBROVASCULAR ACCIDENT [None]
  - CLUMSINESS [None]
  - DIARRHOEA [None]
  - DYSARTHRIA [None]
  - FACIAL PALSY [None]
  - GASTROENTERITIS [None]
  - GRIP STRENGTH DECREASED [None]
  - HYPERLIPIDAEMIA [None]
  - HYPERTENSION [None]
  - HYPOAESTHESIA [None]
  - INTERTRIGO CANDIDA [None]
  - MALAISE [None]
  - NAUSEA [None]
  - OSTEOARTHRITIS [None]
  - PROSTATIC DISORDER [None]
  - PYREXIA [None]
  - RASH PRURITIC [None]
  - REVERSIBLE ISCHAEMIC NEUROLOGICAL DEFICIT [None]
  - SNORING [None]
  - WHITE BLOOD CELL COUNT INCREASED [None]
